FAERS Safety Report 19917541 (Version 1)
Quarter: 2021Q4

REPORT INFORMATION
  Report Type: Spontaneous
  Country: KW (occurrence: KW)
  Receive Date: 20211005
  Receipt Date: 20211005
  Transmission Date: 20220303
  Serious: No
  Sender: FDA-Public Use
  Company Number: KW-LUPIN PHARMACEUTICALS INC.-2021-18529

PATIENT
  Age: 32 Year
  Sex: Male

DRUGS (4)
  1. METHYLPREDNISOLONE [Suspect]
     Active Substance: METHYLPREDNISOLONE
     Indication: Neuralgic amyotrophy
     Dosage: 1000 MILLIGRAM, QD,FOR 5 DAYS
     Route: 042
  2. PREGABALIN [Concomitant]
     Active Substance: PREGABALIN
     Indication: Neuralgic amyotrophy
     Dosage: 300 MILLIGRAM, QD
     Route: 065
  3. TRAMADOL HYDROCHLORIDE [Concomitant]
     Active Substance: TRAMADOL HYDROCHLORIDE
     Indication: Neuralgic amyotrophy
     Dosage: 50 MILLIGRAM, BID
     Route: 065
  4. LIDOCAINE [Concomitant]
     Active Substance: LIDOCAINE
     Indication: Neuralgic amyotrophy
     Dosage: UNK
     Route: 065

REACTIONS (1)
  - Skin disorder [Unknown]
